FAERS Safety Report 9047091 (Version 1)
Quarter: 2013Q1

REPORT INFORMATION
  Report Type: Report from Study
  Country: US (occurrence: US)
  Receive Date: 20130130
  Receipt Date: 20130130
  Transmission Date: 20140127
  Serious: No
  Sender: FDA-Public Use
  Company Number: US-ABBOTT-12P-163-0973538-00

PATIENT
  Age: 48 Year
  Sex: Female

DRUGS (11)
  1. HUMIRA 40 MG/0.8 ML PEN [Suspect]
     Indication: ANKYLOSING SPONDYLITIS
     Dates: start: 20120712
  2. ASA [Concomitant]
     Indication: PROPHYLAXIS
     Dosage: 81MG DAILY
  3. LOSARTAN [Concomitant]
     Indication: BLOOD PRESSURE
     Dosage: 50MG DAILY
  4. BLACK COHOSH OVER THE COUNTER [Concomitant]
     Indication: HOT FLUSH
     Dosage: ONE DAILY
  5. PRAVASTATIN [Concomitant]
     Indication: BLOOD CHOLESTEROL ABNORMAL
     Dosage: 20MG DAILY
  6. CYCLOBENZAPRINE [Concomitant]
     Indication: MUSCLE RELAXANT THERAPY
     Dosage: AT BEDTIME
  7. ZOLPIDEM [Concomitant]
     Indication: SLEEP DISORDER THERAPY
     Dosage: AT BEDTIME
  8. GABAPENTIN [Concomitant]
     Indication: FIBROMYALGIA
  9. IBUPROFEN [Concomitant]
     Indication: PAIN
  10. GENERAL ESGIC [Concomitant]
     Indication: MIGRAINE
  11. PAROXETINE [Concomitant]
     Indication: ANXIETY

REACTIONS (2)
  - Rash [Not Recovered/Not Resolved]
  - Rash [Not Recovered/Not Resolved]
